FAERS Safety Report 6484842-7 (Version None)
Quarter: 2009Q4

REPORT INFORMATION
  Report Type: 
  Country: None (occurrence: None)
  Receive Date: 20091209
  Receipt Date: 20091208
  Transmission Date: 20100525
  Serious: Yes (Life-Threatening, Hospitalization)
  Sender: FDA-Public Use
  Company Number: JP-B.I. PHARMACEUTICALS,INC./RIDGEFIELD-2009-BP-12266NB

PATIENT
  Sex: Female
  Weight: 60 kg

DRUGS (10)
  1. MICARDIS [Suspect]
     Indication: HYPERTENSION
     Dosage: 80 MG
     Route: 048
     Dates: start: 20081018, end: 20091011
  2. GENINAX [Suspect]
     Indication: UPPER RESPIRATORY TRACT INFLAMMATION
     Dosage: 400 MG
     Route: 048
     Dates: start: 20090928, end: 20091010
  3. TIEKAPTO [Suspect]
     Indication: GASTRIC ULCER
     Dosage: 400 MG
     Route: 048
     Dates: end: 20091011
  4. TALION [Concomitant]
     Indication: RHINITIS
     Dosage: 10 MG
     Route: 048
     Dates: start: 20091008, end: 20091011
  5. LIPITOR [Concomitant]
     Indication: HYPERLIPIDAEMIA
     Dosage: 5 MG
     Route: 048
     Dates: start: 20041016, end: 20091011
  6. BIOFERMIN [Concomitant]
     Indication: CONSTIPATION
     Dosage: 2 G
     Route: 048
     Dates: end: 20091011
  7. ALOSENN [Concomitant]
     Indication: CONSTIPATION
     Dosage: 2 G
     Route: 048
     Dates: end: 20091011
  8. BENET [Concomitant]
     Indication: OSTEOPOROSIS
     Dosage: 17.5 MG
     Route: 048
     Dates: end: 20091011
  9. LOXONIN [Concomitant]
     Indication: BACK PAIN
     Dosage: 60 MG
     Route: 048
     Dates: end: 20091011
  10. CODEINE PHOSPHATE [Concomitant]
     Indication: UPPER RESPIRATORY TRACT INFLAMMATION
     Dosage: 0.06 MG
     Route: 048
     Dates: start: 20090928, end: 20091011

REACTIONS (4)
  - LIVER DISORDER [None]
  - TORSADE DE POINTES [None]
  - UPPER RESPIRATORY TRACT INFLAMMATION [None]
  - VENTRICULAR FIBRILLATION [None]
